FAERS Safety Report 6633669-1 (Version None)
Quarter: 2010Q1

REPORT INFORMATION
  Report Type: 
  Country: None (occurrence: None)
  Receive Date: 20100312
  Receipt Date: 20100308
  Transmission Date: 20100710
  Serious: Yes (Hospitalization)
  Sender: FDA-Public Use
  Company Number: BR-AMGEN-ICO237138

PATIENT
  Sex: Female

DRUGS (9)
  1. DARBEPOETIN ALFA [Suspect]
     Indication: RENAL FAILURE CHRONIC
     Route: 058
     Dates: start: 20070103
  2. BENAZEPRIL HYDROCHLORIDE [Concomitant]
     Route: 048
     Dates: start: 20070704
  3. AMLODIPINE [Concomitant]
     Route: 048
     Dates: start: 20070704, end: 20070725
  4. LOSARTAN POTASSIUM [Concomitant]
     Route: 048
     Dates: start: 20061101
  5. ATENOLOL [Concomitant]
     Route: 048
     Dates: start: 19890101
  6. ASPIRIN [Concomitant]
     Route: 048
     Dates: start: 20060401
  7. NPH INSULIN [Concomitant]
     Route: 058
     Dates: start: 20060501
  8. NITRENDIPINE [Concomitant]
     Route: 048
     Dates: start: 20070726
  9. FUROSEMIDE [Concomitant]
     Route: 048
     Dates: start: 20070328

REACTIONS (1)
  - ACUTE PULMONARY OEDEMA [None]
